FAERS Safety Report 7461013-9 (Version None)
Quarter: 2011Q2

REPORT INFORMATION
  Report Type: 
  Country: None (occurrence: None)
  Receive Date: 20110505
  Receipt Date: 20110426
  Transmission Date: 20111010
  Serious: Yes (Death)
  Sender: FDA-Public Use
  Company Number: BR-GENZYME-CERZ-1002031

PATIENT
  Sex: Male
  Weight: 6.6 kg

DRUGS (3)
  1. CEREZYME [Suspect]
     Indication: GAUCHER'S DISEASE
     Dosage: 30.3 U/KG, Q2W
     Route: 042
     Dates: start: 20100825, end: 20101201
  2. FLUIMICIL [Concomitant]
     Indication: PRODUCT USED FOR UNKNOWN INDICATION
     Route: 065
  3. TALIGLUCERASE [Suspect]
     Indication: GAUCHER'S DISEASE
     Dosage: UNK
     Route: 065
     Dates: start: 20101201, end: 20110401

REACTIONS (1)
  - RESPIRATORY FAILURE [None]
